FAERS Safety Report 6907308-6 (Version None)
Quarter: 2010Q3

REPORT INFORMATION
  Report Type: 
  Country: None (occurrence: None)
  Receive Date: 20100730
  Receipt Date: 20090603
  Transmission Date: 20110219
  Serious: Yes (Hospitalization)
  Sender: FDA-Public Use
  Company Number: 013

PATIENT
  Age: 70 Year
  Sex: Female
  Weight: 80.7403 kg

DRUGS (1)
  1. DR. FRANK'S JOINT + MUSCLE PAIN RELIEF [Suspect]
     Indication: ARTHRALGIA
     Dosage: 3 SPRAYS

REACTIONS (2)
  - HYPOAESTHESIA [None]
  - SWOLLEN TONGUE [None]
